FAERS Safety Report 9402418 (Version 3)
Quarter: 2013Q3

REPORT INFORMATION
  Report Type: Report from Study
  Country: ES (occurrence: ES)
  Receive Date: 20130716
  Receipt Date: 20130729
  Transmission Date: 20140515
  Serious: Yes (Other)
  Sender: FDA-Public Use
  Company Number: ES-PFIZER INC-2013204641

PATIENT
  Age: 49 Year
  Sex: Female

DRUGS (8)
  1. TRANKIMAZIN RETARD [Suspect]
     Indication: ANXIETY
     Dosage: 1 MG, 3X/DAY
     Route: 048
     Dates: start: 2006
  2. VANDRAL RETARD [Interacting]
     Indication: DEPRESSION
     Dosage: 150 MG, 2X/DAY
     Route: 048
     Dates: start: 20110623, end: 20120220
  3. TOPAMAX [Interacting]
     Indication: PSYCHOSOMATIC DISEASE
     Dosage: 200 MG, 2X/DAY
     Route: 048
     Dates: start: 20110412, end: 20111114
  4. TOPAMAX [Interacting]
     Dosage: 200 MG, 1X/DAY
     Route: 048
     Dates: start: 20111114
  5. TRIAGYNON [Interacting]
     Indication: ORAL CONTRACEPTION
     Dosage: UNK
     Route: 048
     Dates: end: 201110
  6. ARIPIPRAZOLE [Interacting]
     Indication: DEPRESSION
     Dosage: 2.5 MG, 1X/DAY
     Route: 048
     Dates: start: 20110812, end: 20110814
  7. ARIPIPRAZOLE [Interacting]
     Dosage: 5 MG, 1X/DAY
     Route: 048
     Dates: start: 20110814, end: 20111114
  8. ARIPIPRAZOLE [Interacting]
     Dosage: 15 MG, DAILY
     Route: 048
     Dates: start: 20111114

REACTIONS (2)
  - Abnormal weight gain [Not Recovered/Not Resolved]
  - Drug interaction [Not Recovered/Not Resolved]
